FAERS Safety Report 13272204 (Version 5)
Quarter: 2017Q2

REPORT INFORMATION
  Report Type: Spontaneous
  Country: JP (occurrence: JP)
  Receive Date: 20170227
  Receipt Date: 20170609
  Transmission Date: 20170830
  Serious: Yes (Hospitalization, Other)
  Sender: FDA-Public Use
  Company Number: JP-GLAXOSMITHKLINE-JP2017JPN025058

PATIENT
  Age: 80 Year
  Sex: Male
  Weight: 80 kg

DRUGS (18)
  1. REQUIP [Suspect]
     Active Substance: ROPINIROLE HYDROCHLORIDE
     Dosage: 12 MG, QD
     Route: 048
     Dates: start: 20170329, end: 20170414
  2. REQUIP [Suspect]
     Active Substance: ROPINIROLE HYDROCHLORIDE
     Dosage: 12 MG, QD
     Route: 048
     Dates: start: 20170525, end: 20170525
  3. REQUIP [Suspect]
     Active Substance: ROPINIROLE HYDROCHLORIDE
     Dosage: 10 MG, QD
     Route: 048
     Dates: start: 20170314, end: 20170328
  4. REQUIP [Suspect]
     Active Substance: ROPINIROLE HYDROCHLORIDE
     Dosage: 10 MG, QD
     Route: 048
     Dates: start: 20170526, end: 20170526
  5. STALEVO [Concomitant]
     Active Substance: CARBIDOPA\ENTACAPONE\LEVODOPA
     Indication: PARKINSON^S DISEASE
     Dosage: 1 DF, TID
     Dates: start: 20160707
  6. FP-OD [Concomitant]
     Active Substance: SELEGILINE HYDROCHLORIDE
     Indication: PARKINSON^S DISEASE
     Dosage: 1 DF, BID
     Dates: start: 20161006
  7. REQUIP [Suspect]
     Active Substance: ROPINIROLE HYDROCHLORIDE
     Dosage: 4 MG, QD
     Route: 048
     Dates: start: 20170208, end: 20170214
  8. REQUIP [Suspect]
     Active Substance: ROPINIROLE HYDROCHLORIDE
     Dosage: 8 MG, QD
     Route: 048
     Dates: start: 20170301, end: 20170313
  9. REQUIP [Suspect]
     Active Substance: ROPINIROLE HYDROCHLORIDE
     Dosage: 2 MG, QD
     Route: 048
     Dates: start: 20170530, end: 20170531
  10. REQUIP [Suspect]
     Active Substance: ROPINIROLE HYDROCHLORIDE
     Indication: PARKINSON^S DISEASE
     Dosage: 2 MG, QD
     Route: 048
     Dates: start: 20170201, end: 20170207
  11. REQUIP [Suspect]
     Active Substance: ROPINIROLE HYDROCHLORIDE
     Dosage: 6 MG, QD
     Route: 048
     Dates: start: 20170528, end: 20170528
  12. REQUIP [Suspect]
     Active Substance: ROPINIROLE HYDROCHLORIDE
     Dosage: 4 MG, QD
     Route: 048
     Dates: start: 20170529, end: 20170529
  13. REQUIP [Suspect]
     Active Substance: ROPINIROLE HYDROCHLORIDE
     Dosage: 6 MG, QD
     Route: 048
     Dates: start: 20170215, end: 20170228
  14. REQUIP [Suspect]
     Active Substance: ROPINIROLE HYDROCHLORIDE
     Dosage: 14 MG, QD
     Route: 048
     Dates: start: 20170524, end: 20170524
  15. REQUIP [Suspect]
     Active Substance: ROPINIROLE HYDROCHLORIDE
     Dosage: 14 MG, QD
     Route: 048
     Dates: start: 20170415, end: 20170425
  16. REQUIP [Suspect]
     Active Substance: ROPINIROLE HYDROCHLORIDE
     Dosage: 8 MG, QD
     Route: 048
     Dates: start: 20170527, end: 20170527
  17. REQUIP [Suspect]
     Active Substance: ROPINIROLE HYDROCHLORIDE
     Dosage: 16 MG, QD
     Route: 048
     Dates: start: 20170426, end: 20170523
  18. ZINC OXIDE OINTMENT [Concomitant]
     Indication: ECZEMA NUMMULAR
     Dosage: UNK
     Dates: start: 20160602

REACTIONS (3)
  - Radius fracture [Recovered/Resolved]
  - Delirium [Recovering/Resolving]
  - Fall [Unknown]

NARRATIVE: CASE EVENT DATE: 20170215
